FAERS Safety Report 5843178-5 (Version None)
Quarter: 2008Q3

REPORT INFORMATION
  Report Type: 
  Country: None (occurrence: None)
  Receive Date: 20080813
  Receipt Date: 20080804
  Transmission Date: 20090109
  Serious: Yes (Other)
  Sender: FDA-Public Use
  Company Number: PHHY2008DE16892

PATIENT
  Sex: Female

DRUGS (2)
  1. FEMARA [Suspect]
     Indication: BREAST CANCER
     Dosage: UNK
     Route: 048
     Dates: start: 20030101
  2. ARTHROTEC [Interacting]
     Indication: ARTHROPATHY
     Dosage: UNK
     Route: 048
     Dates: start: 20030101

REACTIONS (6)
  - ARTHROPATHY [None]
  - CERVICOBRACHIAL SYNDROME [None]
  - DIZZINESS [None]
  - DRUG INTERACTION [None]
  - FALL [None]
  - UPPER LIMB FRACTURE [None]
